FAERS Safety Report 7394998-X (Version None)
Quarter: 2011Q2

REPORT INFORMATION
  Report Type: 
  Country: None (occurrence: None)
  Receive Date: 20110405
  Receipt Date: 20100316
  Transmission Date: 20111010
  Serious: Yes (Hospitalization)
  Sender: FDA-Public Use
  Company Number: GB-ALLERGAN-1003632US

PATIENT
  Sex: Female

DRUGS (3)
  1. BOTULINUM TOXIN TYPE A [Suspect]
     Dosage: 200 UNITS, SINGLE
     Route: 030
  2. BOTULINUM TOXIN TYPE A [Suspect]
     Dosage: 100-300 UNITS
     Route: 030
  3. BOTULINUM TOXIN TYPE A [Suspect]
     Indication: HYPERTONIC BLADDER
     Dosage: 100-300 UNITS
     Route: 030

REACTIONS (2)
  - URINARY TRACT INFECTION [None]
  - UROSEPSIS [None]
